FAERS Safety Report 4446673-9 (Version None)
Quarter: 2004Q3

REPORT INFORMATION
  Report Type: 
  Country: None (occurrence: None)
  Receive Date: 20040908
  Receipt Date: 20040826
  Transmission Date: 20050211
  Serious: Yes (Other)
  Sender: FDA-Public Use
  Company Number: 2004042284

PATIENT
  Age: 70 Year
  Sex: Male

DRUGS (3)
  1. VIAGRA [Suspect]
     Indication: ERECTILE DYSFUNCTION
     Dosage: (50 MG, AS NECESSARY), ORAL
     Route: 048
     Dates: start: 20040205
  2. FLUOXETINE HYDROCHLORIDE [Concomitant]
  3. ALENDRONATE SODIUM [Concomitant]

REACTIONS (2)
  - HYPERTENSION [None]
  - INSOMNIA [None]
